FAERS Safety Report 16028518 (Version 1)
Quarter: 2019Q1

REPORT INFORMATION
  Report Type: Spontaneous
  Country: ES (occurrence: ES)
  Receive Date: 20190304
  Receipt Date: 20190304
  Transmission Date: 20190418
  Serious: Yes (Other)
  Sender: FDA-Public Use
  Company Number: ES-SUN PHARMACEUTICAL INDUSTRIES LTD-2019RR-200581

PATIENT
  Age: 64 Year
  Sex: Female

DRUGS (2)
  1. EZETIMIBE/SIMVASTATIN [Suspect]
     Active Substance: EZETIMIBE\SIMVASTATIN
     Indication: HYPERLIPIDAEMIA
     Dosage: 1 DOSAGE FORM, DAILY
     Route: 048
     Dates: start: 20181220, end: 20181227
  2. OLANZAPINA 15 MG 28 CAPSULAS [Concomitant]
     Indication: PERSISTENT DEPRESSIVE DISORDER
     Dosage: 2.5 MILLIGRAM, DAILY
     Route: 048
     Dates: start: 20170803

REACTIONS (2)
  - Dyspnoea [Recovered/Resolved]
  - Pharyngeal oedema [Recovered/Resolved]

NARRATIVE: CASE EVENT DATE: 20181227
